FAERS Safety Report 11586120 (Version 1)
Quarter: 2015Q3

REPORT INFORMATION
  Report Type: Spontaneous
  Country: US (occurrence: US)
  Receive Date: 20150916
  Receipt Date: 20150916
  Transmission Date: 20151125
  Serious: No
  Sender: FDA-Public Use
  Company Number: US-ELI_LILLY_AND_COMPANY-US200803004436

PATIENT
  Age: 66 Year
  Sex: Female

DRUGS (6)
  1. MOBIC [Concomitant]
     Active Substance: MELOXICAM
  2. FORTEO [Suspect]
     Active Substance: TERIPARATIDE
     Dates: start: 20080313
  3. CALCIUM [Concomitant]
     Active Substance: CALCIUM
  4. REMICADE [Concomitant]
     Active Substance: INFLIXIMAB
  5. PREDNISONE. [Concomitant]
     Active Substance: PREDNISONE
  6. METHOTREXATE [Concomitant]
     Active Substance: METHOTREXATE

REACTIONS (4)
  - Fatigue [Not Recovered/Not Resolved]
  - Constipation [Not Recovered/Not Resolved]
  - Weight increased [Not Recovered/Not Resolved]
  - Abdominal distension [Not Recovered/Not Resolved]

NARRATIVE: CASE EVENT DATE: 20080314
